FAERS Safety Report 9828020 (Version 1)
Quarter: 2013Q4

REPORT INFORMATION
  Report Type: Spontaneous
  Country: US (occurrence: None)
  Receive Date: 20131120
  Receipt Date: 20131120
  Transmission Date: 20140711
  Serious: Yes (Life-Threatening, Hospitalization)
  Sender: FDA-Public Use
  Company Number: 2013-002946

PATIENT
  Age: 24 Year
  Sex: Female
  Weight: 55.8 kg

DRUGS (1)
  1. LO LOESTRIN FE [Suspect]
     Indication: CONTRACEPTION
     Dates: start: 201106, end: 20111123

REACTIONS (10)
  - Pulmonary embolism [None]
  - Cardiac murmur [None]
  - Dyspnoea [None]
  - Dyspnoea exertional [None]
  - Chest pain [None]
  - Palpitations [None]
  - Chest discomfort [None]
  - Dizziness [None]
  - Cough [None]
  - Asthenia [None]
